FAERS Safety Report 9243324 (Version 1)
Quarter: 2013Q2

REPORT INFORMATION
  Report Type: Spontaneous
  Country: BR (occurrence: BR)
  Receive Date: 20130419
  Receipt Date: 20130419
  Transmission Date: 20140414
  Serious: Yes (Other)
  Sender: FDA-Public Use
  Company Number: BR-ASTRAZENECA-2012SE21489

PATIENT
  Age: 70 Year
  Sex: Male
  Weight: 81 kg

DRUGS (3)
  1. ATACAND [Suspect]
     Route: 048
     Dates: end: 2012
  2. ATACAND HCT [Suspect]
     Indication: HYPERTENSION
     Dosage: 16/12.5 MG, ONE TABLET/MORNING AND ONE TABLET/NIGHT
     Route: 048
     Dates: start: 2012, end: 20130411
  3. ATENOLOL [Suspect]
     Indication: HEART RATE INCREASED
     Route: 048
     Dates: start: 201212, end: 20130411

REACTIONS (4)
  - Blood pressure increased [Unknown]
  - Liver disorder [Unknown]
  - Heart rate increased [Recovered/Resolved]
  - Drug ineffective [Unknown]
